FAERS Safety Report 9868376 (Version 1)
Quarter: 2014Q1

REPORT INFORMATION
  Report Type: Spontaneous
  Country: FR (occurrence: FR)
  Receive Date: 20140204
  Receipt Date: 20140204
  Transmission Date: 20141002
  Serious: Yes (Other)
  Sender: FDA-Public Use
  Company Number: FR-BRISTOL-MYERS SQUIBB COMPANY-20114427

PATIENT
  Age: 44 Year
  Sex: Male

DRUGS (4)
  1. SUSTIVA TABS 600 MG [Suspect]
     Indication: HIV INFECTION
     Route: 048
     Dates: start: 20080303
  2. ZIAGEN [Suspect]
     Indication: HIV INFECTION
     Route: 048
     Dates: start: 20040607, end: 20120109
  3. VIREAD [Suspect]
     Indication: HIV INFECTION
     Route: 048
     Dates: start: 20100510, end: 20120109
  4. STEROGYL [Concomitant]

REACTIONS (1)
  - Osteopenia [Not Recovered/Not Resolved]
